FAERS Safety Report 6500826-4 (Version None)
Quarter: 2009Q4

REPORT INFORMATION
  Report Type: 
  Country: None (occurrence: None)
  Receive Date: 20091216
  Receipt Date: 20090312
  Transmission Date: 20100525
  Serious: No
  Sender: FDA-Public Use
  Company Number: A0773029A

PATIENT
  Age: 65 Year
  Sex: Female

DRUGS (1)
  1. COMMIT [Suspect]
     Dates: start: 20090301

REACTIONS (4)
  - CHOKING SENSATION [None]
  - COUGH [None]
  - NASOPHARYNGITIS [None]
  - RHINORRHOEA [None]
